FAERS Safety Report 8799450 (Version 2)
Quarter: 2012Q4

REPORT INFORMATION
  Report Type: 
  Country: AU (occurrence: AU)
  Receive Date: 20120919
  Receipt Date: 20121106
  Transmission Date: 20130627
  Serious: Yes (Death, Hospitalization)
  Sender: FDA-Public Use
  Company Number: PHHY2012AU080911

PATIENT
  Age: 93 Year
  Sex: Female

DRUGS (1)
  1. ACLASTA [Suspect]
     Dosage: 5 mg
     Dates: start: 20110324

REACTIONS (5)
  - Multi-organ failure [Fatal]
  - Sepsis [Fatal]
  - Confusional state [Unknown]
  - Leukopenia [Unknown]
  - Anisocytosis [Unknown]
